FAERS Safety Report 8578729-3 (Version None)
Quarter: 2012Q3

REPORT INFORMATION
  Report Type: 
  Country: None (occurrence: None)
  Receive Date: 20120808
  Receipt Date: 20120731
  Transmission Date: 20120928
  Serious: Yes (Hospitalization)
  Sender: FDA-Public Use
  Company Number: US-UCBSA-062653

PATIENT
  Age: 32 Year
  Sex: Female

DRUGS (1)
  1. CIMZIA [Suspect]
     Indication: CROHN'S DISEASE
     Dates: start: 20120201

REACTIONS (5)
  - SEPSIS [None]
  - CROHN'S DISEASE [None]
  - CLOSTRIDIAL INFECTION [None]
  - COLITIS [None]
  - ANAEMIA [None]
